FAERS Safety Report 10060675 (Version 4)
Quarter: 2014Q2

REPORT INFORMATION
  Report Type: Spontaneous
  Country: US (occurrence: US)
  Receive Date: 20140404
  Receipt Date: 20140513
  Transmission Date: 20141212
  Serious: No
  Sender: FDA-Public Use
  Company Number: US-TEVA-473122USA

PATIENT
  Sex: Male

DRUGS (1)
  1. QVAR [Suspect]
     Dosage: 2 PUFFS BID

REACTIONS (6)
  - Weight decreased [Unknown]
  - Back pain [Unknown]
  - Dry mouth [Unknown]
  - Dysphonia [Unknown]
  - Rhinorrhoea [Unknown]
  - Throat irritation [Unknown]
